FAERS Safety Report 5831933-7 (Version None)
Quarter: 2008Q3

REPORT INFORMATION
  Report Type: 
  Country: None (occurrence: None)
  Receive Date: 20080804
  Receipt Date: 20080409
  Transmission Date: 20090109
  Serious: No
  Sender: FDA-Public Use
  Company Number: US-BAYER-200818979NA

PATIENT
  Sex: Male

DRUGS (1)
  1. LEVITRA [Suspect]
     Indication: DRUG USE FOR UNKNOWN INDICATION
     Dosage: AS USED: 20 MG  UNIT DOSE: 20 MG
     Route: 048

REACTIONS (3)
  - ADVERSE EVENT [None]
  - COLOUR BLINDNESS [None]
  - ERECTILE DYSFUNCTION [None]
